FAERS Safety Report 17268014 (Version 1)
Quarter: 2020Q1

REPORT INFORMATION
  Report Type: Spontaneous
  Country: LT (occurrence: LT)
  Receive Date: 20200114
  Receipt Date: 20200114
  Transmission Date: 20200409
  Serious: Yes (Other)
  Sender: FDA-Public Use
  Company Number: LT-VIIV HEALTHCARE LIMITED-LT2020EME003741

PATIENT

DRUGS (3)
  1. LAMIVUDINE. [Suspect]
     Active Substance: LAMIVUDINE
     Indication: CHRONIC HEPATITIS B
     Dosage: 100 MG, 1D
     Dates: start: 200405, end: 200606
  2. REALDIRON [Concomitant]
     Indication: CHRONIC HEPATITIS B
     Dosage: UNK
     Dates: start: 200311
  3. MERCAPTOPURIN [Concomitant]
     Active Substance: MERCAPTOPURINE
     Indication: CHRONIC HEPATITIS B
     Dosage: TIW
     Dates: start: 200311

REACTIONS (1)
  - Pathogen resistance [Unknown]
